FAERS Safety Report 8972450 (Version 2)
Quarter: 2013Q1

REPORT INFORMATION
  Report Type: Spontaneous
  Country: GB (occurrence: GB)
  Receive Date: 20121219
  Receipt Date: 20130227
  Transmission Date: 20140127
  Serious: Yes (Hospitalization)
  Sender: FDA-Public Use
  Company Number: GB-RANBAXY-2012R1-63160

PATIENT
  Age: 33 Year
  Sex: Female
  Weight: 60 kg

DRUGS (18)
  1. ACICLOVIR [Suspect]
     Indication: ORAL HERPES
     Dosage: UNK
     Route: 048
     Dates: start: 20121103, end: 20121108
  2. CEFALEXIN [Suspect]
     Indication: IMPETIGO
     Dosage: UNK
     Route: 048
     Dates: start: 20121103, end: 20121108
  3. BUSCOPAN [Concomitant]
     Indication: PRODUCT USED FOR UNKNOWN INDICATION
     Dosage: 10 MG, Q4H
     Route: 065
  4. CALCEOS [Concomitant]
     Indication: PRODUCT USED FOR UNKNOWN INDICATION
     Dosage: 1 DF, BID
     Route: 065
  5. CANESTEN [Concomitant]
     Indication: PRODUCT USED FOR UNKNOWN INDICATION
     Dosage: UNK
     Route: 065
  6. DUROGESIC DTRANS [Concomitant]
     Indication: PRODUCT USED FOR UNKNOWN INDICATION
     Dosage: 12 ?G, TID
     Route: 065
  7. DUROGESIC DTRANS [Concomitant]
     Indication: PRODUCT USED FOR UNKNOWN INDICATION
     Dosage: UNK
     Route: 065
  8. ESOMEPRAZOLE [Concomitant]
     Indication: PRODUCT USED FOR UNKNOWN INDICATION
     Dosage: 40 MG, QD
     Route: 065
  9. ETANERCEPT [Concomitant]
     Indication: PRODUCT USED FOR UNKNOWN INDICATION
     Dosage: 25 MG, FORTNIGHT
     Route: 065
  10. INDOMETACIN [Concomitant]
     Indication: PRODUCT USED FOR UNKNOWN INDICATION
     Dosage: 100 MG, PRN
     Route: 065
  11. MAXITROL [Concomitant]
     Indication: PRODUCT USED FOR UNKNOWN INDICATION
     Route: 065
  12. NUTRIZYM [Concomitant]
     Indication: PRODUCT USED FOR UNKNOWN INDICATION
     Dosage: 1 DF, QD
     Route: 065
  13. PROCHLORPERAZINE MALEATE [Concomitant]
     Indication: PRODUCT USED FOR UNKNOWN INDICATION
     Dosage: 3 MG, TID
     Route: 065
  14. PULMICORT [Concomitant]
     Indication: PRODUCT USED FOR UNKNOWN INDICATION
     Dosage: 200 ?G, PRN
     Route: 055
  15. SUCRALFATE [Concomitant]
     Indication: PRODUCT USED FOR UNKNOWN INDICATION
     Dosage: 10 ML, BID
     Route: 065
  16. SYSTANE [Concomitant]
     Indication: PRODUCT USED FOR UNKNOWN INDICATION
     Dosage: UNK
     Route: 065
  17. TYLEX [Concomitant]
     Indication: PRODUCT USED FOR UNKNOWN INDICATION
     Dosage: 2 DF, QID
     Route: 065
  18. VENTOLIN [Concomitant]
     Indication: PRODUCT USED FOR UNKNOWN INDICATION
     Dosage: 100 ?G, 2PRN
     Route: 055

REACTIONS (1)
  - Pancreatitis [Recovering/Resolving]
